FAERS Safety Report 4559130-6 (Version None)
Quarter: 2005Q1

REPORT INFORMATION
  Report Type: 
  Country: None (occurrence: None)
  Receive Date: 20050121
  Receipt Date: 20050121
  Transmission Date: 20050727
  Serious: No
  Sender: FDA-Public Use
  Company Number: None

PATIENT
  Age: 79 Year
  Sex: Female
  Weight: 51.7 kg

DRUGS (4)
  1. DICLOFENAC (DICLOFENAC SODIUM) TABLET (DELAYED RELEASE), 75MG [Suspect]
     Indication: ARTHRITIS
     Dosage: 1 TABLET, DAILY
     Dates: start: 20030801, end: 20031208
  2. ACTONEL [Concomitant]
  3. CELEBREX [Concomitant]
  4. MULTIVITAMINS (ERGOCALCIFEROL, THIAMINE HYDROCHLORIDE, RETINOL, RIBOFL [Concomitant]

REACTIONS (2)
  - DIPLOPIA [None]
  - VISION BLURRED [None]
